FAERS Safety Report 7681472-6 (Version None)
Quarter: 2011Q3

REPORT INFORMATION
  Report Type: 
  Country: None (occurrence: None)
  Receive Date: 20110812
  Receipt Date: 20110803
  Transmission Date: 20111222
  Serious: Yes (Hospitalization, Other)
  Sender: FDA-Public Use
  Company Number: PHHY2011CA57808

PATIENT
  Sex: Female

DRUGS (3)
  1. RISPERIDONE [Suspect]
  2. CLOZAPINE [Suspect]
     Dosage: 250 MG, UNK
  3. CLOZAPINE [Suspect]
     Indication: SCHIZOPHRENIA
     Dosage: 200 MG
     Dates: start: 20050517

REACTIONS (7)
  - DEPRESSED MOOD [None]
  - PSYCHIATRIC DECOMPENSATION [None]
  - DISEASE PROGRESSION [None]
  - DISORIENTATION [None]
  - WHITE BLOOD CELL COUNT INCREASED [None]
  - CONFUSIONAL STATE [None]
  - CHOLECYSTITIS [None]
